FAERS Safety Report 15405419 (Version 3)
Quarter: 2022Q3

REPORT INFORMATION
  Report Type: Other
  Country: GB (occurrence: None)
  Receive Date: 20180920
  Receipt Date: 20220822
  Transmission Date: 20221027
  Serious: Yes (Other)
  Sender: FDA-Public Use
  Company Number: GB-ROCHE-2021377

PATIENT
  Sex: Female

DRUGS (4)
  1. TOCILIZUMAB [Suspect]
     Active Substance: TOCILIZUMAB
     Indication: Rheumatoid arthritis
     Route: 058
     Dates: start: 20171025
  2. THYROXINE [Concomitant]
     Active Substance: LEVOTHYROXINE
  3. TYROSINE [Concomitant]
     Active Substance: TYROSINE
  4. MONTELUKAST [Concomitant]
     Active Substance: MONTELUKAST SODIUM

REACTIONS (7)
  - Lung neoplasm malignant [Unknown]
  - Dizziness [Unknown]
  - Asthenia [Unknown]
  - Cough [Unknown]
  - Asthma [Unknown]
  - Pulmonary function test decreased [Unknown]
  - COVID-19 [Unknown]
